FAERS Safety Report 10330396 (Version 3)
Quarter: 2015Q4

REPORT INFORMATION
  Report Type: Spontaneous
  Country: CA (occurrence: CA)
  Receive Date: 20140722
  Receipt Date: 20151013
  Transmission Date: 20160304
  Serious: Yes (Other)
  Sender: FDA-Public Use
  Company Number: CA-ROCHE-1436645

PATIENT
  Sex: Male

DRUGS (11)
  1. XOLAIR [Suspect]
     Active Substance: OMALIZUMAB
     Route: 058
     Dates: start: 20140123
  2. GUAIFENESIN. [Concomitant]
     Active Substance: GUAIFENESIN
  3. VENTOLIN [Concomitant]
     Active Substance: ALBUTEROL SULFATE
  4. SPIRIVA [Concomitant]
     Active Substance: TIOTROPIUM BROMIDE MONOHYDRATE
  5. UNIPHYL [Concomitant]
     Active Substance: THEOPHYLLINE ANHYDROUS
  6. XOLAIR [Suspect]
     Active Substance: OMALIZUMAB
     Indication: ASTHMA
     Route: 058
     Dates: start: 20130627
  7. QVAR [Concomitant]
     Active Substance: BECLOMETHASONE DIPROPIONATE
  8. OLANZAPINE. [Concomitant]
     Active Substance: OLANZAPINE
  9. SINGULAIR [Concomitant]
     Active Substance: MONTELUKAST SODIUM
  10. ADVAIR HFA [Concomitant]
     Active Substance: FLUTICASONE PROPIONATE\SALMETEROL XINAFOATE
  11. ZOPICLONE [Concomitant]
     Active Substance: ZOPICLONE

REACTIONS (6)
  - Pulmonary function test decreased [Unknown]
  - Weight increased [Unknown]
  - Quality of life decreased [Unknown]
  - Drug ineffective [Unknown]
  - General physical health deterioration [Unknown]
  - Chronic obstructive pulmonary disease [Unknown]
